FAERS Safety Report 7945223-X (Version None)
Quarter: 2011Q4

REPORT INFORMATION
  Report Type: 
  Country: None (occurrence: None)
  Receive Date: 20111122
  Receipt Date: 20111115
  Transmission Date: 20120403
  Serious: Yes (Hospitalization)
  Sender: FDA-Public Use
  Company Number: 2011SP014799

PATIENT
  Age: 22 Year
  Sex: Female
  Weight: 70.3075 kg

DRUGS (6)
  1. PROVENTIL [Concomitant]
  2. XOPENEX HFA [Concomitant]
  3. METHOTREXATE [Concomitant]
  4. CHORIONIC GONADOTROPIN [Concomitant]
  5. NUVARING [Suspect]
     Indication: CONTRACEPTION
     Dosage: VAG
     Route: 067
     Dates: start: 20030301, end: 20090417
  6. ADVAIR DISKUS 100/50 [Concomitant]

REACTIONS (7)
  - LUNG CONSOLIDATION [None]
  - HAEMOGLOBINURIA [None]
  - PULMONARY INFARCTION [None]
  - DEEP VEIN THROMBOSIS [None]
  - TACHYCARDIA [None]
  - PULMONARY EMBOLISM [None]
  - HEPATIC CYST [None]
